FAERS Safety Report 24647197 (Version 2)
Quarter: 2024Q4

REPORT INFORMATION
  Report Type: Spontaneous
  Country: ES (occurrence: ES)
  Receive Date: 20241121
  Receipt Date: 20241127
  Transmission Date: 20250115
  Serious: Yes (Death)
  Sender: PFIZER
  Company Number: ES-ROCHE-10000061222

PATIENT
  Age: 59 Year
  Sex: Male
  Weight: 82.5 kg

DRUGS (13)
  1. BEVACIZUMAB [Suspect]
     Active Substance: BEVACIZUMAB
     Indication: Hepatocellular carcinoma
     Dosage: 1155 MG, EVERY 3 WEEKS
     Route: 042
     Dates: start: 20240229
  2. BEVACIZUMAB [Suspect]
     Active Substance: BEVACIZUMAB
     Dosage: RECEIVED THE MOST RECENT DOSE(1230 MG) OF DRUG PRIOR TO AE
     Route: 042
     Dates: start: 20240523
  3. TIRAGOLUMAB [Suspect]
     Active Substance: TIRAGOLUMAB
     Indication: Hepatocellular carcinoma
     Dosage: INFUSION, EVERY 3 WEEKS
     Route: 042
     Dates: start: 20240229
  4. TIRAGOLUMAB [Suspect]
     Active Substance: TIRAGOLUMAB
     Dosage: RECEIVED THE MOST RECENT DOSE OF DRUG PRIOR TO AE
     Route: 042
     Dates: start: 20240523
  5. ATEZOLIZUMAB [Suspect]
     Active Substance: ATEZOLIZUMAB
     Indication: Hepatocellular carcinoma
     Dosage: 1200 MG, EVERY 3 WEEKS
     Route: 042
     Dates: start: 20240229
  6. ATEZOLIZUMAB [Suspect]
     Active Substance: ATEZOLIZUMAB
     Dosage: RECEIVED THE MOST RECENT DOSE (1200 MG) OF DRUG PRIOR TO AE
     Route: 042
     Dates: start: 20240523
  7. CARVEDILOL [Concomitant]
     Active Substance: CARVEDILOL
     Indication: Hypertension
     Dosage: 6.25 MG, 2X/DAY
     Route: 048
     Dates: start: 20240212
  8. OMEPRAZOLE [Concomitant]
     Active Substance: OMEPRAZOLE
     Dosage: GIVEN FOR PROPHYLAXIS IS YES
     Route: 048
     Dates: start: 20240212, end: 20241105
  9. METFORMIN HYDROCHLORIDE [Concomitant]
     Active Substance: METFORMIN HYDROCHLORIDE
     Indication: Type 2 diabetes mellitus
     Dosage: 2000 MG, 2X/DAY
     Route: 048
     Dates: start: 20240319, end: 20241105
  10. VILDAGLIPTIN [Concomitant]
     Active Substance: VILDAGLIPTIN
     Indication: Type 2 diabetes mellitus
     Dosage: 100 MG, 2X/DAY
     Route: 048
     Dates: start: 20240319, end: 20241105
  11. ASPIRIN [Concomitant]
     Active Substance: ASPIRIN
     Indication: Blood cholesterol abnormal
     Dosage: GIVEN FOR PROPHYLAXIS IS YES
     Route: 048
     Dates: start: 20240319, end: 20241105
  12. AMLODIPINE BESYLATE [Concomitant]
     Active Substance: AMLODIPINE BESYLATE
     Indication: Prophylaxis
     Dosage: GIVEN FOR PROPHYLAXIS IS YES
     Route: 048
     Dates: start: 20240409, end: 20241105
  13. ATORVASTATIN CALCIUM [Concomitant]
     Active Substance: ATORVASTATIN CALCIUM
     Dosage: GIVEN FOR PROPHYLAXIS IS YES
     Route: 048
     Dates: start: 20240409, end: 20240703

REACTIONS (3)
  - Death [Fatal]
  - Infusion related reaction [Recovered/Resolved]
  - Off label use [Unknown]

NARRATIVE: CASE EVENT DATE: 20240229
